FAERS Safety Report 18210222 (Version 1)
Quarter: 2020Q3

REPORT INFORMATION
  Report Type: Spontaneous
  Country: KW (occurrence: KW)
  Receive Date: 20200829
  Receipt Date: 20200829
  Transmission Date: 20201103
  Serious: Yes (Other)
  Sender: FDA-Public Use
  Company Number: KW-ALVOGEN-2020-ALVOGEN-114028

PATIENT
  Age: 17 Year
  Sex: Male

DRUGS (4)
  1. BUPROPION. [Suspect]
     Active Substance: BUPROPION
     Indication: ADOLESCENCE
  2. BUPROPION. [Suspect]
     Active Substance: BUPROPION
     Indication: MAJOR DEPRESSION
  3. BUPROPION. [Suspect]
     Active Substance: BUPROPION
     Indication: MAJOR DEPRESSION
  4. BUPROPION. [Suspect]
     Active Substance: BUPROPION
     Indication: ADOLESCENCE

REACTIONS (3)
  - Electrocardiogram QT prolonged [Recovering/Resolving]
  - Off label use [Unknown]
  - Palpitations [Recovering/Resolving]
